FAERS Safety Report 7177448-8 (Version None)
Quarter: 2010Q4

REPORT INFORMATION
  Report Type: 
  Country: None (occurrence: None)
  Receive Date: 20101220
  Receipt Date: 20101209
  Transmission Date: 20110411
  Serious: Yes (Other)
  Sender: FDA-Public Use
  Company Number: CA-JNJFOC-20101204696

PATIENT
  Sex: Male
  Weight: 87 kg

DRUGS (13)
  1. REMICADE [Suspect]
     Indication: COLITIS ULCERATIVE
     Route: 042
  2. REMICADE [Suspect]
     Dosage: 20 INFUSIONS ADMINISTERED
     Route: 042
  3. CANDESARTAN [Concomitant]
  4. METOPROLOL TARTRATE [Concomitant]
  5. AMIODARONE HCL [Concomitant]
  6. PANTOPRAZOLE [Concomitant]
  7. FERROUS GLUCONATE [Concomitant]
  8. WARFARIN SODIUM [Concomitant]
  9. ROSUVASTATIN [Concomitant]
  10. MESASAL [Concomitant]
  11. ACTONEL [Concomitant]
  12. PREDNISONE [Concomitant]
  13. MULTIVITE [Concomitant]

REACTIONS (1)
  - RECTAL HAEMORRHAGE [None]
